FAERS Safety Report 8902058 (Version 1)
Quarter: 2012Q4

REPORT INFORMATION
  Report Type: 
  Country: DE (occurrence: DE)
  Receive Date: 20121112
  Receipt Date: 20121112
  Transmission Date: 20130627
  Serious: Yes (Hospitalization)
  Sender: FDA-Public Use
  Company Number: DE-ELI_LILLY_AND_COMPANY-DE201210009921

PATIENT
  Age: 74 Year
  Sex: Female

DRUGS (11)
  1. FORSTEO [Suspect]
     Indication: OSTEOPOROSIS
     Dosage: 20 ug, qd
     Route: 058
     Dates: start: 20110428
  2. ASS [Concomitant]
  3. METOPROLOL SUCCINATE [Concomitant]
  4. LOSARTAN [Concomitant]
  5. ALLOPURINOL [Concomitant]
  6. SIMVASTATIN [Concomitant]
  7. TILIDIN [Concomitant]
  8. DEKRISTOL [Concomitant]
     Dosage: UNK, weekly (1/W)
  9. BIOTIN [Concomitant]
  10. ZINK [Concomitant]
  11. MAGNESIUM [Concomitant]

REACTIONS (2)
  - Hip arthroplasty [Recovered/Resolved]
  - Pain [Not Recovered/Not Resolved]
